FAERS Safety Report 17769386 (Version 3)
Quarter: 2020Q2

REPORT INFORMATION
  Report Type: Spontaneous
  Country: US (occurrence: US)
  Receive Date: 20200512
  Receipt Date: 20200612
  Transmission Date: 20200714
  Serious: Yes (Hospitalization, Other)
  Sender: FDA-Public Use
  Company Number: US-EMMAUS MEDICAL, INC.-EMM202005-000175

PATIENT
  Age: 65 Year
  Sex: Male

DRUGS (2)
  1. ALLOPURINOL. [Concomitant]
     Active Substance: ALLOPURINOL
     Indication: PRODUCT USED FOR UNKNOWN INDICATION
  2. ENDARI [Suspect]
     Active Substance: GLUTAMINE
     Indication: THALASSAEMIA SICKLE CELL
     Route: 048
     Dates: start: 20180405

REACTIONS (3)
  - Electrolyte imbalance [Unknown]
  - Anaphylactic shock [Not Recovered/Not Resolved]
  - Sickle cell anaemia with crisis [Unknown]

NARRATIVE: CASE EVENT DATE: 20200328
